FAERS Safety Report 15431484 (Version 5)
Quarter: 2019Q2

REPORT INFORMATION
  Report Type: Spontaneous
  Country: US (occurrence: US)
  Receive Date: 20180926
  Receipt Date: 20190501
  Transmission Date: 20190711
  Serious: Yes (Death, Hospitalization, Other)
  Sender: FDA-Public Use
  Company Number: US-PFIZER INC-2018367368

PATIENT
  Age: 76 Year
  Sex: Male

DRUGS (26)
  1. NAPROXEN. [Concomitant]
     Active Substance: NAPROXEN
     Indication: ARTHRALGIA
     Dosage: 500 MG, AS NEEDED
     Dates: start: 201808
  2. ASPIRIN [ACETYLSALICYLIC ACID] [Concomitant]
     Active Substance: ASPIRIN
     Dosage: 81 MG, DAILY
     Dates: start: 201808
  3. BIOTIN [Concomitant]
     Active Substance: BIOTIN
     Dosage: 500 MG, 1X/DAY
     Dates: start: 201808
  4. B-6 [Concomitant]
     Dosage: 50 MG, 1X/DAY
     Dates: start: 201808
  5. GENOTROPIN MQ [Suspect]
     Active Substance: SOMATROPIN
     Dosage: 1 MG, DAILY (ALWAYS TAKES IT AT NIGHT)
     Route: 058
     Dates: start: 20100118
  6. QVAR [Concomitant]
     Active Substance: BECLOMETHASONE DIPROPIONATE
     Indication: CHRONIC OBSTRUCTIVE PULMONARY DISEASE
     Dosage: 80 UG, 2X/DAY
     Dates: start: 201808
  7. DEXTROAMPHETAMINE [DEXAMFETAMINE SULFATE] [Concomitant]
     Dosage: AS NEEDED (10 MG SPANSULES 5-6 DAILY PRN)
     Dates: start: 201808
  8. CLONAZEPAM. [Concomitant]
     Active Substance: CLONAZEPAM
     Indication: SLEEP DISORDER
     Dosage: AS NEEDED (0.5 MG 1 OR 2 PRN)
     Dates: start: 201808
  9. LAMOTRIGINE. [Concomitant]
     Active Substance: LAMOTRIGINE
     Indication: SEIZURE
     Dosage: 250 MG, DAILY (100 MG AM 150 MG PM)
     Dates: start: 201808
  10. FLOMAX [Concomitant]
     Active Substance: TAMSULOSIN HYDROCHLORIDE
     Dosage: 0.4 MG, 1X/DAY
     Dates: start: 201808
  11. VITAMIN C [Concomitant]
     Active Substance: ASCORBIC ACID
     Dosage: 500 MG, DAILY
     Dates: start: 201808
  12. GLUCOSAMINE CHONDROITIN [CHONDROITIN SULFATE;GLUCOSAMINE] [Concomitant]
     Dosage: UNK, 2X/DAY
     Dates: start: 201808
  13. VITAMIN B12 [Concomitant]
     Active Substance: CYANOCOBALAMIN
     Dosage: UNK, DAILY
     Dates: start: 201808
  14. CARVEDILOL. [Concomitant]
     Active Substance: CARVEDILOL
     Indication: EJECTION FRACTION ABNORMAL
     Dosage: UNK, 2X/DAY
     Dates: start: 201808
  15. METHYLFOLATE [Concomitant]
     Active Substance: LEVOMEFOLATE CALCIUM
     Dosage: 15 MG, DAILY
     Dates: start: 201808
  16. COQ10 [UBIDECARENONE] [Concomitant]
     Active Substance: UBIDECARENONE
     Dosage: 100 MG, DAILY
     Dates: start: 201808
  17. VITAMIN D3 [Concomitant]
     Active Substance: CHOLECALCIFEROL
     Dosage: 2000 IU, 1X/DAY
     Dates: start: 201808
  18. GENOTROPIN MQ [Suspect]
     Active Substance: SOMATROPIN
     Indication: GROWTH HORMONE DEFICIENCY
     Dosage: UNK, 1X/DAY (DAILY AT NIGHT)
     Dates: start: 200912
  19. COMBIVENT RESPIMAT [Concomitant]
     Active Substance: ALBUTEROL SULFATE\IPRATROPIUM BROMIDE
     Indication: CHRONIC OBSTRUCTIVE PULMONARY DISEASE
     Dosage: UNK, 2X/DAY
     Dates: start: 201808
  20. CALCIUM [Concomitant]
     Active Substance: CALCIUM
     Dosage: 500 MG, 2X/DAY
     Dates: start: 201808
  21. COLCHICINE. [Concomitant]
     Active Substance: COLCHICINE
     Indication: CHONDROCALCINOSIS PYROPHOSPHATE
     Dosage: 2X/DAY (0.6MG, 1/2 TWICE DAILY)
     Dates: start: 201808
  22. FISH OIL [Concomitant]
     Active Substance: FISH OIL
     Dosage: 1 DF, 1X/DAY
     Dates: start: 201808
  23. GENOTROPIN MQ [Suspect]
     Active Substance: SOMATROPIN
     Dosage: UNK, 1X/DAY
  24. ATORVASTIN [Concomitant]
     Active Substance: ATORVASTATIN
     Indication: BLOOD CHOLESTEROL ABNORMAL
     Dosage: 20 MG, DAILY
     Dates: start: 201808
  25. KETOCONAZOLE. [Concomitant]
     Active Substance: KETOCONAZOLE
     Dosage: 2 %, UNK
     Dates: start: 201808
  26. VITAMIN B1 [Concomitant]
     Active Substance: THIAMINE HYDROCHLORIDE
     Dosage: 100 MG, 1X/DAY
     Dates: start: 201808

REACTIONS (11)
  - Intestinal perforation [Unknown]
  - Intestinal obstruction [Fatal]
  - Clostridium difficile infection [Recovered/Resolved]
  - Gastrointestinal necrosis [Unknown]
  - Blood pressure abnormal [Unknown]
  - Peritonitis [Fatal]
  - Renal failure [Fatal]
  - Incarcerated hernia [Fatal]
  - Multiple organ dysfunction syndrome [Fatal]
  - Product dose omission [Unknown]
  - Oedema [Unknown]

NARRATIVE: CASE EVENT DATE: 201801
